FAERS Safety Report 8485565-5 (Version None)
Quarter: 2012Q2

REPORT INFORMATION
  Report Type: 
  Country: None (occurrence: None)
  Receive Date: 20120627
  Receipt Date: 20120627
  Transmission Date: 20120825
  Serious: Yes (Other)
  Sender: FDA-Public Use
  Company Number: None

PATIENT
  Age: 32 Year
  Sex: Female
  Weight: 43.5453 kg

DRUGS (1)
  1. ONDANSETRON [Suspect]
     Indication: NAUSEA
     Dosage: 4MG ONCE IV
     Route: 042
     Dates: start: 20120502, end: 20120502

REACTIONS (2)
  - PRURITUS [None]
  - ERYTHEMA [None]
